FAERS Safety Report 7668501-0 (Version None)
Quarter: 2011Q3

REPORT INFORMATION
  Report Type: 
  Country: None (occurrence: None)
  Receive Date: 20110808
  Receipt Date: 20110803
  Transmission Date: 20111222
  Serious: Yes (Life-Threatening, Hospitalization)
  Sender: FDA-Public Use
  Company Number: DE-BRISTOL-MYERS SQUIBB COMPANY-15901929

PATIENT
  Age: 66 Year
  Sex: Male

DRUGS (2)
  1. ABILIFY [Suspect]
     Indication: SCHIZOAFFECTIVE DISORDER
     Dosage: DOSE REDUCED TO 10MG
     Route: 048
     Dates: start: 20110101, end: 20110701
  2. RISPERDAL [Suspect]

REACTIONS (3)
  - RESPIRATORY FAILURE [None]
  - HYPOXIA [None]
  - HYPERCAPNIA [None]
